FAERS Safety Report 4571211-X (Version None)
Quarter: 2005Q1

REPORT INFORMATION
  Report Type: 
  Country: None (occurrence: None)
  Receive Date: 20050202
  Receipt Date: 20050114
  Transmission Date: 20050727
  Serious: Yes (Other)
  Sender: FDA-Public Use
  Company Number: US_0411108051

PATIENT
  Age: 42 Year
  Sex: Female
  Weight: 67 kg

DRUGS (21)
  1. ZYPREXA [Suspect]
     Indication: SCHIZOPHRENIA
     Dosage: 10 MG/2 AT BEDTIME
     Dates: start: 19980701, end: 20000609
  2. ZANTAC [Concomitant]
  3. DEMEROL (FETHIDINE HYDROCHLORIDE) [Concomitant]
  4. XANAX (ALPRAZOLAM DUM) [Concomitant]
  5. FIORICET [Concomitant]
  6. ELAVIL [Concomitant]
  7. LIPITOR [Concomitant]
  8. NUBAIN [Concomitant]
  9. VISTARIL [Concomitant]
  10. TORADOL [Concomitant]
  11. PRILOSEC (OMEPRAZOLE RATIOPHARM) [Concomitant]
  12. DROPERIDOL [Concomitant]
  13. PHENERGAN [Concomitant]
  14. INDERAL [Concomitant]
  15. SINEQUAN [Concomitant]
  16. CHOLESTYRAMINE [Concomitant]
  17. BENADRYL [Concomitant]
  18. VALIUM [Concomitant]
  19. GLUCOTROL [Concomitant]
  20. ELAVIL [Concomitant]
  21. ZYRTEC [Concomitant]

REACTIONS (21)
  - BACK PAIN [None]
  - BLOOD CHOLESTEROL INCREASED [None]
  - BLOOD GLUCOSE DECREASED [None]
  - BLOOD GLUCOSE INCREASED [None]
  - DIABETES MELLITUS NON-INSULIN-DEPENDENT [None]
  - DYSARTHRIA [None]
  - FALL [None]
  - FLUSHING [None]
  - HEADACHE [None]
  - HYPERGLYCAEMIA [None]
  - HYPOAESTHESIA [None]
  - LACERATION [None]
  - LOSS OF CONSCIOUSNESS [None]
  - MIGRAINE [None]
  - NAUSEA [None]
  - PANCREATITIS [None]
  - PARAESTHESIA [None]
  - ROAD TRAFFIC ACCIDENT [None]
  - SKIN INJURY [None]
  - VOMITING [None]
  - WEIGHT INCREASED [None]
